FAERS Safety Report 7935371-2 (Version None)
Quarter: 2011Q4

REPORT INFORMATION
  Report Type: 
  Country: None (occurrence: None)
  Receive Date: 20111122
  Receipt Date: 20111115
  Transmission Date: 20120403
  Serious: Yes (Other)
  Sender: FDA-Public Use
  Company Number: IE-B.I. PHARMACEUTICALS,INC./RIDGEFIELD-2011-UK-01245UK

PATIENT
  Age: 71 Year
  Sex: Female

DRUGS (4)
  1. PRADAXA [Suspect]
     Indication: ATRIAL FIBRILLATION
     Dosage: 150 MG
     Route: 048
     Dates: start: 20111017, end: 20111102
  2. TYLEX 30MG/50MG HARD CAPSULES [Concomitant]
  3. ALENDRONATE SODIUM [Concomitant]
  4. SIMVASTATIN [Concomitant]

REACTIONS (2)
  - ASTHENIA [None]
  - NAUSEA [None]
